FAERS Safety Report 19845297 (Version 1)
Quarter: 2021Q3

REPORT INFORMATION
  Report Type: Spontaneous
  Country: US (occurrence: US)
  Receive Date: 20210916
  Receipt Date: 20210916
  Transmission Date: 20211014
  Serious: No
  Sender: FDA-Public Use
  Company Number: None

PATIENT
  Age: 62 Year
  Sex: Female
  Weight: 70 kg

DRUGS (1)
  1. ALBUTEROL SULFATE HFA [Suspect]
     Active Substance: ALBUTEROL SULFATE
     Indication: ASTHMA
     Route: 055
     Dates: start: 20201226

REACTIONS (6)
  - Condition aggravated [None]
  - Lower respiratory tract infection [None]
  - Therapy non-responder [None]
  - Device delivery system issue [None]
  - Product quality issue [None]
  - Wheezing [None]

NARRATIVE: CASE EVENT DATE: 20210705
